FAERS Safety Report 7595433-9 (Version None)
Quarter: 2011Q3

REPORT INFORMATION
  Report Type: 
  Country: None (occurrence: None)
  Receive Date: 20110707
  Receipt Date: 20110628
  Transmission Date: 20111222
  Serious: Yes (Other)
  Sender: FDA-Public Use
  Company Number: JP-ROCHE-769230

PATIENT
  Sex: Female

DRUGS (3)
  1. PACLITAXEL [Concomitant]
     Dosage: DOSAGE IS UNCERTAIN.
     Route: 041
     Dates: start: 20090801
  2. HERCEPTIN [Suspect]
     Indication: BREAST CANCER RECURRENT
     Route: 041
  3. HERCEPTIN [Suspect]
     Route: 041

REACTIONS (3)
  - NEUROPATHY PERIPHERAL [None]
  - DYSGEUSIA [None]
  - PAROSMIA [None]
